FAERS Safety Report 24278632 (Version 4)
Quarter: 2025Q1

REPORT INFORMATION
  Report Type: Report from Study
  Country: US (occurrence: US)
  Receive Date: 20240903
  Receipt Date: 20250204
  Transmission Date: 20250409
  Serious: No
  Sender: SUNOVION
  Company Number: US-SUMITOMO PHARMA SWITZERLAND GMBH-2024SPA001012

PATIENT

DRUGS (1)
  1. ORGOVYX [Suspect]
     Active Substance: RELUGOLIX
     Indication: Prostate cancer
     Dosage: 120 MG, QD
     Route: 048
     Dates: start: 20240718

REACTIONS (9)
  - Erectile dysfunction [Unknown]
  - Muscle spasms [Unknown]
  - Night sweats [Unknown]
  - Muscle atrophy [Unknown]
  - Adverse event [Unknown]
  - Myalgia [Unknown]
  - Libido decreased [Unknown]
  - Hot flush [Unknown]
  - Incorrect dose administered [Unknown]
